FAERS Safety Report 5326890-6 (Version None)
Quarter: 2007Q2

REPORT INFORMATION
  Report Type: 
  Country: None (occurrence: None)
  Receive Date: 20070511
  Receipt Date: 20070425
  Transmission Date: 20071010
  Serious: Yes (Other)
  Sender: FDA-Public Use
  Company Number: 2007JP001510

PATIENT
  Age: 75 Year
  Sex: Male

DRUGS (3)
  1. VESICARE [Suspect]
     Indication: HYPERTONIC BLADDER
     Dosage: 5 MG, UID/QD. ORAL
     Route: 048
     Dates: start: 20070315, end: 20070322
  2. HARNAL (TAMSULOSIN) ORODISPERSABLE CR TABLET, UNKNOWN [Concomitant]
     Indication: BENIGN PROSTATIC HYPERPLASIA
     Dosage: 0.2 MG, UID/QD, ORAL
     Route: 048
  3. MICARDIS [Suspect]
     Dosage: ORAL
     Route: 048

REACTIONS (3)
  - BLOOD LACTATE DEHYDROGENASE INCREASED [None]
  - C-REACTIVE PROTEIN INCREASED [None]
  - DRUG ERUPTION [None]
